FAERS Safety Report 9016787 (Version 1)
Quarter: 2013Q1

REPORT INFORMATION
  Report Type: Spontaneous
  Country: JP (occurrence: JP)
  Receive Date: 20130117
  Receipt Date: 20130117
  Transmission Date: 20140127
  Serious: Yes (Other)
  Sender: FDA-Public Use
  Company Number: JP-ACCORD-015944

PATIENT
  Age: 79 Year
  Sex: Male

DRUGS (2)
  1. DOCETAXEL [Suspect]
     Indication: PROSTATE CANCER METASTATIC
  2. PREDNISOLONE [Suspect]
     Indication: PROSTATE CANCER METASTATIC

REACTIONS (1)
  - Nocardiosis [Recovered/Resolved]
